FAERS Safety Report 5541454-7 (Version None)
Quarter: 2007Q4

REPORT INFORMATION
  Report Type: 
  Country: None (occurrence: None)
  Receive Date: 20071210
  Receipt Date: 20071129
  Transmission Date: 20080405
  Serious: Yes (Other)
  Sender: FDA-Public Use
  Company Number: CH-JNJFOC-20071200829

PATIENT
  Age: 45 Year
  Sex: Female

DRUGS (2)
  1. REMICADE [Suspect]
     Indication: SPONDYLITIS
     Route: 042
  2. ARAVA [Concomitant]
     Indication: SPONDYLITIS
     Route: 048

REACTIONS (1)
  - GASTROENTERITIS EOSINOPHILIC [None]
